FAERS Safety Report 10017119 (Version 1)
Quarter: 2014Q1

REPORT INFORMATION
  Report Type: Spontaneous
  Country: US (occurrence: US)
  Receive Date: 20140318
  Receipt Date: 20140318
  Transmission Date: 20141002
  Serious: No
  Sender: FDA-Public Use
  Company Number: US-009507513-1403USA004729

PATIENT
  Age: 7 Year
  Sex: Female

DRUGS (7)
  1. NASONEX [Suspect]
     Indication: HYPERSENSITIVITY
     Dosage: 50 MCG/ONE SPRAY IN EACH NOSTRIL, TWICE DAILY
     Route: 045
     Dates: start: 2010
  2. PROVENTIL [Concomitant]
     Dosage: INHALER, AS NEEDED
  3. ALBUTEROL SULFATE [Concomitant]
     Dosage: NEBULIZER, AS NEEDED
  4. QVAR [Concomitant]
     Dosage: 80 MG
  5. SINGULAIR [Concomitant]
  6. ZYRTEE [Concomitant]
  7. ASTELIN (AZELASTINE HYDROCHLORIDE) [Concomitant]

REACTIONS (6)
  - Sinusitis [Recovering/Resolving]
  - Adenotonsillectomy [Recovering/Resolving]
  - Sinus operation [Recovering/Resolving]
  - Product quality issue [Unknown]
  - Inappropriate schedule of drug administration [Unknown]
  - Drug administration error [Unknown]
